FAERS Safety Report 17587409 (Version 2)
Quarter: 2020Q2

REPORT INFORMATION
  Report Type: Report from Study
  Country: US (occurrence: US)
  Receive Date: 20200326
  Receipt Date: 20200402
  Transmission Date: 20200713
  Serious: Yes (Hospitalization)
  Sender: FDA-Public Use
  Company Number: US-ACTELION-A-NJ2018-175671

PATIENT
  Age: 65 Year
  Sex: Female
  Weight: 52.15 kg

DRUGS (5)
  1. VELETRI [Suspect]
     Active Substance: EPOPROSTENOL
     Indication: PULMONARY ARTERIAL HYPERTENSION
     Dosage: 38 NG/KG, PER MIN
     Route: 042
  2. VELETRI [Suspect]
     Active Substance: EPOPROSTENOL
     Dosage: 32 NG/KG, PER MIN
     Route: 042
  3. WARFARIN [Concomitant]
     Active Substance: WARFARIN
  4. VELETRI [Suspect]
     Active Substance: EPOPROSTENOL
     Dosage: 33 NG/KG, PER MIN
     Route: 042
  5. DILTIAZEM. [Concomitant]
     Active Substance: DILTIAZEM

REACTIONS (14)
  - Dyspnoea exertional [Recovered/Resolved]
  - Influenza [Recovered/Resolved]
  - Product dose omission [Unknown]
  - Catheter site haemorrhage [Unknown]
  - Fatigue [Unknown]
  - Feeling hot [Unknown]
  - Catheter placement [Unknown]
  - Emergency care [Unknown]
  - Upper respiratory tract infection [Unknown]
  - Device delivery system issue [Unknown]
  - Complication associated with device [Unknown]
  - Dyspnoea [Recovered/Resolved]
  - Cough [Recovered/Resolved]
  - Asthenia [Unknown]

NARRATIVE: CASE EVENT DATE: 20200225
